FAERS Safety Report 8813737 (Version 3)
Quarter: 2013Q4

REPORT INFORMATION
  Report Type: Report from Study
  Country: CA (occurrence: CA)
  Receive Date: 20120928
  Receipt Date: 20131219
  Transmission Date: 20140711
  Serious: Yes (Hospitalization, Other)
  Sender: FDA-Public Use
  Company Number: CA-ROCHE-1136266

PATIENT
  Age: 64 Year
  Sex: Female
  Weight: 95 kg

DRUGS (12)
  1. TOCILIZUMAB [Suspect]
     Indication: RHEUMATOID ARTHRITIS
     Route: 042
     Dates: start: 20110527
  2. TOCILIZUMAB [Suspect]
     Route: 042
     Dates: start: 20120116
  3. TOCILIZUMAB [Suspect]
     Route: 042
     Dates: start: 20130319
  4. TOCILIZUMAB [Suspect]
     Route: 042
     Dates: start: 20131210
  5. METHOTREXATE [Concomitant]
  6. TEMAZEPAM [Concomitant]
  7. PREDNISONE [Concomitant]
  8. DILAUDID [Concomitant]
  9. ALPRAZOLAM [Concomitant]
  10. LORAZEPAM [Concomitant]
  11. MIRAPEX [Concomitant]
  12. HYDRALAZINE [Concomitant]

REACTIONS (14)
  - Procedural complication [Recovering/Resolving]
  - Rheumatoid arthritis [Unknown]
  - Anaemia [Recovering/Resolving]
  - White blood cell count decreased [Recovering/Resolving]
  - Musculoskeletal discomfort [Recovered/Resolved]
  - Muscle rupture [Recovered/Resolved]
  - Bone disorder [Recovered/Resolved]
  - Arthralgia [Not Recovered/Not Resolved]
  - Cystitis [Unknown]
  - Back pain [Unknown]
  - Rheumatoid arthritis [Not Recovered/Not Resolved]
  - Drug dose omission [Unknown]
  - Arthralgia [Unknown]
  - Musculoskeletal stiffness [Unknown]
